FAERS Safety Report 25223031 (Version 2)
Quarter: 2025Q2

REPORT INFORMATION
  Report Type: Spontaneous
  Country: PL (occurrence: PL)
  Receive Date: 20250422
  Receipt Date: 20250513
  Transmission Date: 20250716
  Serious: Yes (Hospitalization, Other)
  Sender: AMGEN
  Company Number: PL-SERVIER-S25004961

PATIENT
  Age: 66 Year
  Sex: Female

DRUGS (1)
  1. IVABRADINE [Suspect]
     Active Substance: IVABRADINE
     Indication: Sinus tachycardia
     Dosage: 5 MG, BID
     Route: 048

REACTIONS (20)
  - Exercise tolerance decreased [Unknown]
  - Dyspnoea exertional [Unknown]
  - Cardiomegaly [Unknown]
  - Fibrin D dimer increased [Unknown]
  - N-terminal prohormone brain natriuretic peptide increased [Unknown]
  - Pulmonary artery dilatation [Unknown]
  - Right ventricular enlargement [Unknown]
  - Ventricular hypokinesia [Unknown]
  - Right ventricular failure [Unknown]
  - Right ventricular dysfunction [Unknown]
  - Right atrial enlargement [Unknown]
  - Pericardial effusion [Unknown]
  - Bundle branch block right [Unknown]
  - Cardiac failure [Unknown]
  - Catheterisation cardiac [Unknown]
  - Pulmonary hypertension [Unknown]
  - Rheumatoid arthritis [Unknown]
  - Interstitial lung disease [Unknown]
  - Chronic respiratory failure [Unknown]
  - General physical health deterioration [Unknown]
